FAERS Safety Report 10184243 (Version 1)
Quarter: 2014Q2

REPORT INFORMATION
  Report Type: Spontaneous
  Country: US (occurrence: US)
  Receive Date: 20140520
  Receipt Date: 20140520
  Transmission Date: 20141212
  Serious: No
  Sender: FDA-Public Use
  Company Number: US-ASTRAZENECA-2013SE78220

PATIENT
  Age: 69 Year
  Sex: Female
  Weight: 63.5 kg

DRUGS (2)
  1. RHINOCORT AQUA [Suspect]
     Indication: SINUS DISORDER
     Route: 045
     Dates: start: 2004, end: 20131022
  2. PRILOSEC [Suspect]
     Indication: GASTROOESOPHAGEAL REFLUX DISEASE
     Dosage: 1 TABLET DAILY
     Route: 048
     Dates: start: 2011

REACTIONS (2)
  - Cataract [Unknown]
  - Off label use [Unknown]
